FAERS Safety Report 15769668 (Version 2)
Quarter: 2019Q1

REPORT INFORMATION
  Report Type: Spontaneous
  Country: PL (occurrence: PL)
  Receive Date: 20181228
  Receipt Date: 20190128
  Transmission Date: 20190417
  Serious: Yes (Hospitalization, Other)
  Sender: FDA-Public Use
  Company Number: PL-AUROBINDO-AUR-APL-2018-063115

PATIENT
  Age: 62 Year
  Sex: Male

DRUGS (8)
  1. POTASSIUM [Concomitant]
     Active Substance: POTASSIUM
     Indication: HYPOKALAEMIA
     Dosage: UNK
     Route: 065
     Dates: start: 20180914
  2. NEBIVOLOL. [Concomitant]
     Active Substance: NEBIVOLOL
     Indication: HYPERTENSION
     Dosage: UNK
     Route: 065
     Dates: start: 2011
  3. FUROSEMIDE. [Concomitant]
     Active Substance: FUROSEMIDE
     Indication: HYPERTENSION
     Dosage: UNK
     Route: 065
     Dates: start: 20180914
  4. BISOPROLOL [Suspect]
     Active Substance: BISOPROLOL
     Indication: HYPERTENSION
     Dosage: UNK
     Route: 065
     Dates: start: 20180914
  5. CEFALEXIN [Suspect]
     Active Substance: CEPHALEXIN
     Indication: SEPSIS
     Dosage: 2 DOSAGE FORM, ONCE A DAY (2 DF, QD)
     Route: 065
     Dates: start: 20180914, end: 20181007
  6. AMLODIPINE [Suspect]
     Active Substance: AMLODIPINE BESYLATE
     Indication: PRODUCT USED FOR UNKNOWN INDICATION
     Dosage: UNK
     Route: 065
     Dates: start: 20180914
  7. RIFAMPICIN [Suspect]
     Active Substance: RIFAMPIN
     Indication: SEPSIS
     Dosage: 300 MILLIGRAM, TWO TIMES A DAY (300 MG, BID)
     Route: 048
     Dates: start: 20170914, end: 20181007
  8. CEFALEXIN [Suspect]
     Active Substance: CEPHALEXIN
     Dosage: 500 MILLIGRAM, TWO TIMES A DAY, 500 MG, BID
     Route: 065
     Dates: start: 20180914, end: 20181007

REACTIONS (3)
  - Clostridium difficile colitis [Recovered/Resolved]
  - Gastroenteritis clostridial [Recovered/Resolved]
  - Diarrhoea [Recovering/Resolving]

NARRATIVE: CASE EVENT DATE: 20181015
